FAERS Safety Report 8262790-X (Version None)
Quarter: 2012Q2

REPORT INFORMATION
  Report Type: 
  Country: None (occurrence: None)
  Receive Date: 20120405
  Receipt Date: 20120330
  Transmission Date: 20120825
  Serious: Yes (Other)
  Sender: FDA-Public Use
  Company Number: US-ASTRAZENECA-2012SE19437

PATIENT
  Age: 63 Year
  Sex: Male

DRUGS (2)
  1. RHINOCORT [Suspect]
     Route: 045
  2. B12 SHOT [Concomitant]

REACTIONS (2)
  - MYOCARDIAL INFARCTION [None]
  - ANAEMIA [None]
